FAERS Safety Report 5017810-2 (Version None)
Quarter: 2006Q2

REPORT INFORMATION
  Report Type: 
  Country: None (occurrence: None)
  Receive Date: 20060605
  Receipt Date: 20051227
  Transmission Date: 20061013
  Serious: Yes (Hospitalization)
  Sender: FDA-Public Use
  Company Number: 2005AP06622

PATIENT
  Age: 20972 Day
  Sex: Male
  Weight: 67 kg

DRUGS (55)
  1. DIPRIVAN [Suspect]
     Indication: INDUCTION OF ANAESTHESIA
     Dosage: 120 MG INDUCTION; 200 MG/HR MAINTENANCE
     Route: 042
     Dates: start: 20051120, end: 20051120
  2. DIPRIVAN [Suspect]
     Indication: MAINTENANCE OF ANAESTHESIA
     Dosage: 120 MG INDUCTION; 200 MG/HR MAINTENANCE
     Route: 042
     Dates: start: 20051120, end: 20051120
  3. DIPRIVAN [Suspect]
     Indication: SEDATION
     Dosage: 120 MG INDUCTION; 200 MG/HR MAINTENANCE
     Route: 042
     Dates: start: 20051120, end: 20051120
  4. DIPRIVAN [Suspect]
     Route: 042
     Dates: start: 20051120, end: 20051121
  5. DIPRIVAN [Suspect]
     Route: 042
     Dates: start: 20051120, end: 20051121
  6. DIPRIVAN [Suspect]
     Route: 042
     Dates: start: 20051120, end: 20051121
  7. DIPRIVAN [Suspect]
     Route: 042
     Dates: start: 20051121, end: 20051121
  8. DIPRIVAN [Suspect]
     Route: 042
     Dates: start: 20051121, end: 20051121
  9. DIPRIVAN [Suspect]
     Route: 042
     Dates: start: 20051121, end: 20051121
  10. DIPRIVAN [Suspect]
     Route: 042
     Dates: start: 20051121, end: 20051127
  11. DIPRIVAN [Suspect]
     Route: 042
     Dates: start: 20051121, end: 20051127
  12. DIPRIVAN [Suspect]
     Route: 042
     Dates: start: 20051121, end: 20051127
  13. DIPRIVAN [Suspect]
     Route: 042
     Dates: start: 20051127, end: 20051128
  14. DIPRIVAN [Suspect]
     Route: 042
     Dates: start: 20051127, end: 20051128
  15. DIPRIVAN [Suspect]
     Route: 042
     Dates: start: 20051127, end: 20051128
  16. DIPRIVAN [Suspect]
     Route: 042
     Dates: start: 20051128, end: 20051129
  17. DIPRIVAN [Suspect]
     Route: 042
     Dates: start: 20051128, end: 20051129
  18. DIPRIVAN [Suspect]
     Route: 042
     Dates: start: 20051128, end: 20051129
  19. DIPRIVAN [Suspect]
     Route: 042
     Dates: start: 20051129, end: 20051130
  20. DIPRIVAN [Suspect]
     Route: 042
     Dates: start: 20051129, end: 20051130
  21. DIPRIVAN [Suspect]
     Route: 042
     Dates: start: 20051129, end: 20051130
  22. DIPRIVAN [Suspect]
     Route: 042
     Dates: start: 20051130, end: 20051206
  23. DIPRIVAN [Suspect]
     Route: 042
     Dates: start: 20051130, end: 20051206
  24. DIPRIVAN [Suspect]
     Route: 042
     Dates: start: 20051130, end: 20051206
  25. KAKODIN [Concomitant]
     Indication: BLOOD PRESSURE MANAGEMENT
     Route: 041
     Dates: start: 20051119, end: 20051208
  26. KAKODIN [Concomitant]
     Indication: SHOCK
     Route: 041
     Dates: start: 20051119, end: 20051208
  27. KAKODIN [Concomitant]
     Route: 041
     Dates: start: 20051120, end: 20051120
  28. KAKODIN [Concomitant]
     Route: 041
     Dates: start: 20051120, end: 20051120
  29. AMIKACIN SULFATE [Concomitant]
     Route: 041
     Dates: start: 20051120, end: 20051211
  30. VANCOMYCIN [Concomitant]
     Route: 041
     Dates: start: 20051120
  31. HUMULIN 70/30 [Concomitant]
     Indication: PROPHYLAXIS
     Route: 041
     Dates: start: 20051120, end: 20051120
  32. HUMULIN 70/30 [Concomitant]
     Indication: GLUCOSE TOLERANCE IMPAIRED
     Route: 041
     Dates: start: 20051120, end: 20051120
  33. HUMULIN 70/30 [Concomitant]
     Route: 041
     Dates: start: 20051120, end: 20051208
  34. HUMULIN 70/30 [Concomitant]
     Route: 041
     Dates: start: 20051120, end: 20051208
  35. HEPARIN [Concomitant]
     Indication: THROMBOSIS IN DEVICE
     Route: 041
     Dates: start: 20051120, end: 20051120
  36. HEPARIN [Concomitant]
     Indication: ANTICOAGULANT THERAPY
     Route: 041
     Dates: start: 20051120, end: 20051120
  37. HEPARIN [Concomitant]
     Route: 041
     Dates: start: 20051122, end: 20051207
  38. HEPARIN [Concomitant]
     Route: 041
     Dates: start: 20051122, end: 20051207
  39. VASOLAN [Concomitant]
     Indication: PROPHYLAXIS
     Route: 041
     Dates: start: 20051123, end: 20051211
  40. FENTANEST [Concomitant]
     Indication: ANAESTHESIA
     Route: 042
     Dates: start: 20051120, end: 20051120
  41. FENTANEST [Concomitant]
     Indication: SEDATION
     Route: 042
     Dates: start: 20051120, end: 20051120
  42. MUSCULAX [Concomitant]
     Indication: MUSCLE RELAXANT THERAPY
     Route: 042
     Dates: start: 20051120, end: 20051120
  43. SEFAMEZIN ALPHA [Concomitant]
     Indication: INFECTION PROPHYLAXIS
     Dates: start: 20051120, end: 20051120
  44. INDERAL [Concomitant]
     Indication: PROPHYLAXIS
     Dates: start: 20051120, end: 20051120
  45. NORADRENALINE [Concomitant]
     Indication: BLOOD PRESSURE MANAGEMENT
     Route: 042
     Dates: start: 20051120, end: 20051120
  46. NORADRENALINE [Concomitant]
     Indication: SHOCK
     Route: 042
     Dates: start: 20051120, end: 20051120
  47. NORADRENALINE [Concomitant]
     Route: 041
     Dates: start: 20051120, end: 20051208
  48. NORADRENALINE [Concomitant]
     Route: 041
     Dates: start: 20051120, end: 20051208
  49. PITRESSIN [Concomitant]
     Indication: BLOOD PRESSURE MANAGEMENT
     Route: 042
     Dates: start: 20051120, end: 20051120
  50. LASIX [Concomitant]
     Indication: POLYURIA
     Route: 042
     Dates: start: 20051120, end: 20051120
  51. DOBUTREX [Concomitant]
     Indication: POSITIVE CARDIAC INOTROPIC EFFECT
     Route: 042
     Dates: start: 20051120, end: 20051120
  52. DOBUTREX [Concomitant]
     Route: 041
     Dates: start: 20051120, end: 20051121
  53. CARCICOL [Concomitant]
     Indication: HYPOCALCAEMIA
     Route: 042
     Dates: start: 20051120, end: 20051120
  54. PROTAMINE SULFATE [Concomitant]
     Indication: HEPARIN NEUTRALISATION THERAPY
     Route: 042
     Dates: start: 20051120, end: 20051120
  55. HANP [Concomitant]

REACTIONS (3)
  - ATRIAL FIBRILLATION [None]
  - DELAYED RECOVERY FROM ANAESTHESIA [None]
  - PYREXIA [None]
